FAERS Safety Report 23272026 (Version 2)
Quarter: 2023Q4

REPORT INFORMATION
  Report Type: Spontaneous
  Country: JM (occurrence: JM)
  Receive Date: 20231207
  Receipt Date: 20231220
  Transmission Date: 20240109
  Serious: Yes (Life-Threatening, Hospitalization, Other)
  Sender: FDA-Public Use
  Company Number: JM-002147023-NVSC2023JM213236

PATIENT
  Age: 45 Year
  Sex: Male
  Weight: 84.8 kg

DRUGS (3)
  1. TASIGNA [Suspect]
     Active Substance: NILOTINIB
     Indication: Chronic myeloid leukaemia
     Dosage: 400 MG, QD
     Route: 065
  2. TASIGNA [Suspect]
     Active Substance: NILOTINIB
     Dosage: 400 G, BID
     Route: 048
     Dates: start: 202303, end: 20230710
  3. TASIGNA [Suspect]
     Active Substance: NILOTINIB
     Dosage: 200 MG, QD
     Route: 065
     Dates: start: 20231128

REACTIONS (4)
  - Pancytopenia [Recovering/Resolving]
  - Febrile neutropenia [Unknown]
  - Hypersensitivity [Unknown]
  - Ulcer [Unknown]

NARRATIVE: CASE EVENT DATE: 20230711
